FAERS Safety Report 18187228 (Version 1)
Quarter: 2020Q3

REPORT INFORMATION
  Report Type: Spontaneous
  Country: JP (occurrence: JP)
  Receive Date: 20200824
  Receipt Date: 20200824
  Transmission Date: 20201103
  Serious: Yes (Life-Threatening, Hospitalization)
  Sender: FDA-Public Use
  Company Number: JP-SCIEGEN-2020SCILIT00247

PATIENT
  Age: 18 Year
  Sex: Female

DRUGS (8)
  1. DAPAGLIFLOZIN. [Suspect]
     Active Substance: DAPAGLIFLOZIN
     Indication: PRODUCT USED FOR UNKNOWN INDICATION
     Dosage: 5 TABLETS OF 5 MG
     Route: 065
  2. GLIMEPIRIDE. [Suspect]
     Active Substance: GLIMEPIRIDE
     Indication: PRODUCT USED FOR UNKNOWN INDICATION
     Dosage: 7 TABLETS OF 1 MG
     Route: 065
  3. CRYSTALLOID [Interacting]
     Active Substance: UNSPECIFIED INGREDIENT
     Indication: OVERDOSE
     Dosage: FLUID RESUSCITATION WITH WITH 4 L OF CRYSTALLOID
     Route: 065
  4. ATORVASTATIN CALCIUM. [Suspect]
     Active Substance: ATORVASTATIN CALCIUM
     Indication: PRODUCT USED FOR UNKNOWN INDICATION
     Dosage: 1 TABLET OF 10 MG
     Route: 065
  5. VILDAGLIPTIN [Suspect]
     Active Substance: VILDAGLIPTIN
     Indication: PRODUCT USED FOR UNKNOWN INDICATION
     Dosage: 26 TABLETS OF 50 MG
     Route: 065
  6. METFORMIN HYDROCHLORIDETABLETS [Suspect]
     Active Substance: METFORMIN HYDROCHLORIDE
     Indication: PRODUCT USED FOR UNKNOWN INDICATION
     Dosage: 64 TABLETS OF 250 MG
     Route: 065
  7. BICARBONATE [Interacting]
     Active Substance: SODIUM BICARBONATE
     Indication: OVERDOSE
     Dosage: 40 ML OF 8.4 % BICARBONATE
     Route: 065
  8. ACTIVATED CHARCOAL. [Interacting]
     Active Substance: ACTIVATED CHARCOAL
     Indication: OVERDOSE
     Route: 045

REACTIONS (6)
  - Overdose [Unknown]
  - Drug abuse [Unknown]
  - Suicide attempt [Unknown]
  - Capillary leak syndrome [Recovered/Resolved]
  - Compartment syndrome [Recovered/Resolved]
  - Lactic acidosis [Unknown]
